FAERS Safety Report 13814472 (Version 1)
Quarter: 2017Q3

REPORT INFORMATION
  Report Type: Report from Study
  Country: US (occurrence: US)
  Receive Date: 20170731
  Receipt Date: 20170731
  Transmission Date: 20171127
  Serious: Yes (Other)
  Sender: FDA-Public Use
  Company Number: US-JNJFOC-20170722757

PATIENT
  Age: 65 Year
  Sex: Male

DRUGS (10)
  1. IMBRUVICA [Suspect]
     Active Substance: IBRUTINIB
     Indication: ANAEMIA
     Route: 048
  2. IMBRUVICA [Suspect]
     Active Substance: IBRUTINIB
     Indication: LYMPHOMA
     Route: 048
  3. IMBRUVICA [Suspect]
     Active Substance: IBRUTINIB
     Indication: ANAEMIA
     Route: 048
     Dates: start: 20170324
  4. IMBRUVICA [Suspect]
     Active Substance: IBRUTINIB
     Indication: BASAL CELL CARCINOMA
     Route: 048
  5. IMBRUVICA [Suspect]
     Active Substance: IBRUTINIB
     Indication: BASAL CELL CARCINOMA
     Route: 048
     Dates: start: 20170324
  6. IMBRUVICA [Suspect]
     Active Substance: IBRUTINIB
     Indication: BASAL CELL CARCINOMA
     Route: 048
  7. IMBRUVICA [Suspect]
     Active Substance: IBRUTINIB
     Indication: LYMPHOMA
     Route: 048
     Dates: start: 20170324
  8. IMBRUVICA [Suspect]
     Active Substance: IBRUTINIB
     Indication: ANAEMIA
     Route: 048
  9. MULTIVITAMINS [Concomitant]
     Active Substance: VITAMINS
  10. IMBRUVICA [Suspect]
     Active Substance: IBRUTINIB
     Indication: LYMPHOMA
     Route: 048

REACTIONS (7)
  - Off label use [Unknown]
  - Headache [Unknown]
  - Haemoptysis [Unknown]
  - Retinal tear [Unknown]
  - Nasopharyngitis [Unknown]
  - Product use in unapproved indication [Unknown]
  - Epistaxis [Not Recovered/Not Resolved]

NARRATIVE: CASE EVENT DATE: 2017
